FAERS Safety Report 8147262 (Version 3)
Quarter: 2014Q3

REPORT INFORMATION
  Report Type: Spontaneous
  Country: NL (occurrence: NL)
  Receive Date: 20110922
  Receipt Date: 20140728
  Transmission Date: 20150326
  Serious: Yes (Other)
  Sender: FDA-Public Use
  Company Number: NL-RANBAXY-2011R1-47926

PATIENT

DRUGS (3)
  1. VINCRISTINE [Interacting]
     Active Substance: VINCRISTINE
     Dosage: UNK
     Route: 065
  2. VINCRISTINE [Interacting]
     Active Substance: VINCRISTINE
     Indication: ACUTE LYMPHOCYTIC LEUKAEMIA
     Dosage: UNK
     Route: 065
  3. FLUCONAZOLE. [Suspect]
     Active Substance: FLUCONAZOLE
     Indication: FUNGAL INFECTION
     Dosage: 5 MG/KG QD
     Route: 065

REACTIONS (3)
  - Constipation [Recovering/Resolving]
  - Drug interaction [Recovering/Resolving]
  - Neuropathy peripheral [Recovering/Resolving]
